FAERS Safety Report 25086663 (Version 1)
Quarter: 2025Q1

REPORT INFORMATION
  Report Type: Spontaneous
  Country: CA (occurrence: CA)
  Receive Date: 20250317
  Receipt Date: 20250317
  Transmission Date: 20250409
  Serious: Yes (Death, Life-Threatening, Hospitalization, Disabling, Other)
  Sender: Haleon PLC
  Company Number: CA-002147023-NVSC2025CA043155

PATIENT
  Age: 43 Year
  Sex: Female
  Weight: 68 kg

DRUGS (54)
  1. DICLOFENAC [Suspect]
     Active Substance: DICLOFENAC
     Indication: Rheumatoid arthritis
     Route: 065
  2. HYRIMOZ [Suspect]
     Active Substance: ADALIMUMAB-ADAZ
     Indication: Rheumatoid arthritis
     Route: 050
  3. METHOTREXATE [Suspect]
     Active Substance: METHOTREXATE
     Indication: Psoriatic arthropathy
     Dosage: 25 MG, QD
     Route: 050
  4. METHOTREXATE [Suspect]
     Active Substance: METHOTREXATE
     Indication: Rheumatoid arthritis
     Route: 065
  5. METHOTREXATE [Suspect]
     Active Substance: METHOTREXATE
     Dosage: 25 MG, QW
     Route: 050
  6. METHOTREXATE [Suspect]
     Active Substance: METHOTREXATE
     Route: 050
  7. METHOTREXATE [Suspect]
     Active Substance: METHOTREXATE
     Dosage: 25 MG, QW
     Route: 050
  8. METHOTREXATE [Suspect]
     Active Substance: METHOTREXATE
     Dosage: 25 MG, QD
     Route: 065
  9. METHOTREXATE [Suspect]
     Active Substance: METHOTREXATE
     Dosage: 2 G, QD
     Route: 050
  10. METHOTREXATE [Suspect]
     Active Substance: METHOTREXATE
     Dosage: UNK, QD
     Route: 065
  11. METHOTREXATE [Suspect]
     Active Substance: METHOTREXATE
     Dosage: 25 MG, QW
     Route: 050
  12. METHOTREXATE [Suspect]
     Active Substance: METHOTREXATE
     Route: 050
  13. METHOTREXATE [Suspect]
     Active Substance: METHOTREXATE
     Route: 050
  14. METHOTREXATE [Suspect]
     Active Substance: METHOTREXATE
     Dosage: 20 MG, QD
     Route: 050
  15. METHOTREXATE [Suspect]
     Active Substance: METHOTREXATE
     Route: 050
  16. METHOTREXATE [Suspect]
     Active Substance: METHOTREXATE
     Dosage: 25 MG, QW
     Route: 050
  17. METHOTREXATE [Suspect]
     Active Substance: METHOTREXATE
     Route: 065
  18. METHOTREXATE [Suspect]
     Active Substance: METHOTREXATE
     Route: 050
  19. METHOTREXATE [Suspect]
     Active Substance: METHOTREXATE
     Dosage: 20 MG, QW
     Route: 065
  20. METHOTREXATE [Suspect]
     Active Substance: METHOTREXATE
     Dosage: 2 G, QD
     Route: 065
  21. METHOTREXATE [Suspect]
     Active Substance: METHOTREXATE
     Route: 050
  22. METHOTREXATE [Suspect]
     Active Substance: METHOTREXATE
     Dosage: 20 MG, QD
     Route: 065
  23. METHOTREXATE [Suspect]
     Active Substance: METHOTREXATE
     Route: 065
  24. METHOTREXATE [Suspect]
     Active Substance: METHOTREXATE
     Route: 050
  25. METHOTREXATE [Suspect]
     Active Substance: METHOTREXATE
     Dosage: 2 G, QD
     Route: 050
  26. METHOTREXATE [Suspect]
     Active Substance: METHOTREXATE
     Route: 065
  27. METHOTREXATE [Suspect]
     Active Substance: METHOTREXATE
     Dosage: 20 MG, QD
     Route: 050
  28. ERELZI [Suspect]
     Active Substance: ETANERCEPT-SZZS
     Indication: Rheumatoid arthritis
     Route: 050
  29. ERELZI [Suspect]
     Active Substance: ETANERCEPT-SZZS
     Route: 050
  30. ERELZI [Suspect]
     Active Substance: ETANERCEPT-SZZS
     Route: 050
  31. DICLOFENAC SODIUM [Suspect]
     Active Substance: DICLOFENAC SODIUM
     Indication: Product used for unknown indication
     Route: 065
  32. RITUXIMAB [Suspect]
     Active Substance: RITUXIMAB
     Indication: Rheumatoid arthritis
     Route: 050
  33. RITUXIMAB [Suspect]
     Active Substance: RITUXIMAB
     Route: 040
  34. ALENDRONIC ACID [Suspect]
     Active Substance: ALENDRONIC ACID
     Indication: Rheumatoid arthritis
     Route: 050
  35. MYCOPHENOLATE MOFETIL [Suspect]
     Active Substance: MYCOPHENOLATE MOFETIL
     Indication: Product used for unknown indication
     Route: 065
  36. FOLIC ACID [Suspect]
     Active Substance: FOLIC ACID
     Indication: Rheumatoid arthritis
     Route: 065
  37. FOLIC ACID [Suspect]
     Active Substance: FOLIC ACID
     Route: 065
  38. FOLIC ACID [Suspect]
     Active Substance: FOLIC ACID
     Route: 065
  39. FOLIC ACID [Suspect]
     Active Substance: FOLIC ACID
     Dosage: 500 G, QD
     Route: 050
  40. FOLIC ACID [Suspect]
     Active Substance: FOLIC ACID
     Route: 050
  41. FOLIC ACID [Suspect]
     Active Substance: FOLIC ACID
     Route: 065
  42. FOLIC ACID [Suspect]
     Active Substance: FOLIC ACID
     Route: 050
  43. FOLIC ACID [Suspect]
     Active Substance: FOLIC ACID
     Route: 065
  44. FOLIC ACID [Suspect]
     Active Substance: FOLIC ACID
     Route: 050
  45. FOLIC ACID [Suspect]
     Active Substance: FOLIC ACID
     Route: 050
  46. FOLIC ACID [Suspect]
     Active Substance: FOLIC ACID
     Route: 065
  47. ACETAMINOPHEN [Suspect]
     Active Substance: ACETAMINOPHEN
     Indication: Rheumatoid arthritis
     Route: 050
  48. ACETAMINOPHEN [Suspect]
     Active Substance: ACETAMINOPHEN
     Route: 065
  49. COSENTYX [Suspect]
     Active Substance: SECUKINUMAB
     Indication: Psoriatic arthropathy
     Dosage: 40 MG, QD
     Route: 065
  50. COSENTYX [Suspect]
     Active Substance: SECUKINUMAB
     Route: 065
  51. COSENTYX [Suspect]
     Active Substance: SECUKINUMAB
     Dosage: 40 MG, QD
     Route: 065
  52. COSENTYX [Suspect]
     Active Substance: SECUKINUMAB
     Route: 065
  53. LEFLUNOMIDE [Suspect]
     Active Substance: LEFLUNOMIDE
     Indication: Rheumatoid arthritis
     Dosage: 1 DOSAGE FORM, QD
     Route: 050
  54. LEFLUNOMIDE [Suspect]
     Active Substance: LEFLUNOMIDE
     Dosage: 1 DOSAGE FORM, QD
     Route: 050

REACTIONS (39)
  - Systemic lupus erythematosus [Fatal]
  - Mobility decreased [Fatal]
  - Oedema peripheral [Fatal]
  - Rheumatoid arthritis [Fatal]
  - Road traffic accident [Fatal]
  - Underdose [Fatal]
  - Pancreatitis [Fatal]
  - Muscle spasms [Fatal]
  - Paraesthesia [Fatal]
  - Memory impairment [Fatal]
  - Weight decreased [Fatal]
  - Musculoskeletal pain [Fatal]
  - Pericarditis [Fatal]
  - Pain in extremity [Fatal]
  - Swelling [Fatal]
  - Psoriatic arthropathy [Fatal]
  - Sciatica [Fatal]
  - Peripheral venous disease [Fatal]
  - Joint range of motion decreased [Fatal]
  - Therapy non-responder [Fatal]
  - Liver disorder [Fatal]
  - Muscular weakness [Fatal]
  - Porphyria acute [Fatal]
  - Wheezing [Fatal]
  - White blood cell count increased [Fatal]
  - Off label use [Fatal]
  - Wound infection [Fatal]
  - Synovitis [Fatal]
  - Night sweats [Fatal]
  - Wound [Fatal]
  - Weight increased [Fatal]
  - Rectal haemorrhage [Fatal]
  - Lip dry [Fatal]
  - Rash [Fatal]
  - Obesity [Fatal]
  - Rheumatoid factor positive [Fatal]
  - Vomiting [Fatal]
  - Osteoarthritis [Fatal]
  - Laboratory test abnormal [Fatal]
